FAERS Safety Report 9002715 (Version 1)
Quarter: 2013Q1

REPORT INFORMATION
  Report Type: Spontaneous
  Country: US (occurrence: US)
  Receive Date: 20130107
  Receipt Date: 20130107
  Transmission Date: 20140127
  Serious: No
  Sender: FDA-Public Use
  Company Number: US-GLAXOSMITHKLINE-A0993706A

PATIENT
  Age: 53 Year
  Sex: Female
  Weight: 102.15 kg

DRUGS (7)
  1. BENLYSTA [Suspect]
     Indication: SYSTEMIC LUPUS ERYTHEMATOSUS
     Route: 042
     Dates: start: 20110701
  2. PREDNISONE [Concomitant]
     Dosage: 40MG PER DAY
  3. METHOTREXATE [Concomitant]
  4. PLAQUENIL [Concomitant]
     Dosage: 200MG PER DAY
  5. IMURAN [Concomitant]
     Dosage: 100MG PER DAY
  6. SYNTHROID [Concomitant]
  7. LORTAB [Concomitant]

REACTIONS (4)
  - Spinal pain [Recovered/Resolved]
  - Local swelling [Recovered/Resolved]
  - Swelling face [Recovered/Resolved]
  - Swollen tongue [Recovered/Resolved]
